FAERS Safety Report 6808186-6 (Version None)
Quarter: 2010Q2

REPORT INFORMATION
  Report Type: 
  Country: None (occurrence: None)
  Receive Date: 20100629
  Receipt Date: 20090604
  Transmission Date: 20101027
  Serious: No
  Sender: FDA-Public Use
  Company Number: US-PFIZER INC-2009190454

PATIENT
  Sex: Male
  Weight: 90.703 kg

DRUGS (3)
  1. XANAX [Suspect]
  2. ZOLOFT [Suspect]
  3. CHANTIX [Suspect]
     Indication: SMOKING CESSATION THERAPY
     Dates: start: 20090317

REACTIONS (4)
  - ABDOMINAL DISCOMFORT [None]
  - ANXIETY [None]
  - DIARRHOEA [None]
  - NAUSEA [None]
